FAERS Safety Report 16139077 (Version 1)
Quarter: 2019Q2

REPORT INFORMATION
  Report Type: Spontaneous
  Country: GB (occurrence: GB)
  Receive Date: 20190401
  Receipt Date: 20190401
  Transmission Date: 20190711
  Serious: Yes (Life-Threatening)
  Sender: FDA-Public Use
  Company Number: GB-ACCORD-116801

PATIENT
  Age: 65 Year
  Sex: Female
  Weight: 62 kg

DRUGS (15)
  1. BISOPROLOL [Concomitant]
     Active Substance: BISOPROLOL
     Dates: start: 20160712
  2. ASPIRIN. [Concomitant]
     Active Substance: ASPIRIN
     Dates: start: 20160712
  3. PRAVASTATIN. [Concomitant]
     Active Substance: PRAVASTATIN
     Dosage: NIGHT.
     Dates: start: 20171006, end: 20190115
  4. AMLODIPINE [Concomitant]
     Active Substance: AMLODIPINE BESYLATE
     Dates: start: 20180913, end: 20190115
  5. COCODAMOL [Concomitant]
     Active Substance: ACETAMINOPHEN\CODEINE PHOSPHATE
     Dosage: TAKE 1 OR 2 FOUR TIMES A DAY.
     Dates: start: 20180511
  6. METFORMIN [Concomitant]
     Active Substance: METFORMIN HYDROCHLORIDE
     Dates: start: 20180813
  7. GABAPENTIN. [Concomitant]
     Active Substance: GABAPENTIN
     Dates: start: 20171120
  8. EZETIMIBE. [Concomitant]
     Active Substance: EZETIMIBE
     Dates: start: 20160712, end: 20190115
  9. RAMIPRIL. [Concomitant]
     Active Substance: RAMIPRIL
     Dosage: 6AM AND 6PM.
     Dates: start: 20190115
  10. OMEPRAZOLE. [Concomitant]
     Active Substance: OMEPRAZOLE
     Dates: start: 20160712
  11. GLYCERYL TRINITRATE [Concomitant]
     Active Substance: NITROGLYCERIN
     Dosage: ONE TO TWO PUFFS.
     Dates: start: 20190115
  12. FULTIUM-D3 [Concomitant]
     Active Substance: CHOLECALCIFEROL
     Dates: start: 20160712
  13. CLOPIDOGREL [Suspect]
     Active Substance: CLOPIDOGREL BISULFATE
     Indication: ACUTE MYOCARDIAL INFARCTION
     Dates: start: 20190115
  14. ROSUVASTATIN/ROSUVASTATIN CALCIUM [Concomitant]
     Dosage: NIGHT.
     Dates: start: 20190115
  15. TICAGRELOR. [Concomitant]
     Active Substance: TICAGRELOR
     Indication: PERCUTANEOUS CORONARY INTERVENTION
     Dates: start: 20190111, end: 2019

REACTIONS (1)
  - Anaphylactic reaction [Recovered/Resolved]
